FAERS Safety Report 9021319 (Version 1)
Quarter: 2013Q1

REPORT INFORMATION
  Report Type: Spontaneous
  Country: US (occurrence: US)
  Receive Date: 20130119
  Receipt Date: 20130119
  Transmission Date: 20140127
  Serious: No
  Sender: FDA-Public Use
  Company Number: US-ALLERGAN-1201411US

PATIENT
  Age: 51 Year
  Sex: Female
  Weight: 61.22 kg

DRUGS (1)
  1. BOTOX? [Suspect]
     Indication: TORTICOLLIS
     Dosage: 110 UNITS, SINGLE
     Route: 030
     Dates: start: 20111204, end: 20111204

REACTIONS (14)
  - Joint range of motion decreased [Not Recovered/Not Resolved]
  - Asthenia [Unknown]
  - Vision blurred [Unknown]
  - Choking [Recovered/Resolved]
  - Tendon disorder [Unknown]
  - Pain in extremity [Not Recovered/Not Resolved]
  - Sensory disturbance [Unknown]
  - Malaise [Unknown]
  - Muscular weakness [Unknown]
  - Muscular weakness [Unknown]
  - Nausea [Recovered/Resolved]
  - Constipation [Recovered/Resolved]
  - Musculoskeletal stiffness [Unknown]
  - Hyperaesthesia [Unknown]
